FAERS Safety Report 9274610 (Version 1)
Quarter: 2013Q2

REPORT INFORMATION
  Report Type: Spontaneous
  Country: US (occurrence: US)
  Receive Date: 20130507
  Receipt Date: 20130507
  Transmission Date: 20140414
  Serious: Yes (Other)
  Sender: FDA-Public Use
  Company Number: US-PFIZER INC-2007305313

PATIENT
  Age: 38 Year
  Sex: Female
  Weight: 116.12 kg

DRUGS (33)
  1. IBUPROFEN [Suspect]
     Dosage: ^FROM THE TIME SHE WAS A TEENAGER^
     Route: 048
     Dates: end: 2002
  2. CELEBREX [Suspect]
     Indication: ARTHRITIS
     Dosage: UNKNOWN
     Route: 065
     Dates: start: 2002, end: 2002
  3. CELEBREX [Suspect]
     Indication: INFLAMMATION
  4. NAPROSYN [Suspect]
     Dosage: UNSPECIFIED
     Route: 065
  5. SINGULAR [Concomitant]
  6. LISINOPRIL [Concomitant]
  7. LIPITOR [Concomitant]
  8. CLARITIN [Concomitant]
  9. FLONASE [Concomitant]
  10. LORTAB [Concomitant]
  11. VALIUM [Concomitant]
  12. ZOLOFT [Concomitant]
  13. AMITRIPTYLINE [Concomitant]
  14. NEURONTIN [Concomitant]
  15. BACLOFEN [Concomitant]
  16. VITAMIN B12 [Concomitant]
  17. ROBAXIN [Concomitant]
  18. SERAVENT [Concomitant]
  19. FLOVENT [Concomitant]
  20. OXYGEN [Concomitant]
  21. ALBUTEROL [Concomitant]
  22. NEXIUM [Concomitant]
  23. ZELNORM [Concomitant]
  24. FIBROLAX [Concomitant]
  25. DOCUSATE SODIUM [Concomitant]
  26. REGLAN [Concomitant]
  27. DYAZIDE [Concomitant]
  28. BABY ASPIRIN [Concomitant]
  29. VITAMIN E [Concomitant]
  30. VITAMIN C [Concomitant]
  31. MOBIC [Concomitant]
  32. MIRAPEX [Concomitant]
  33. LEVOTHYROXINE SODIUM [Concomitant]

REACTIONS (6)
  - Intracranial aneurysm [Unknown]
  - Erosive oesophagitis [Not Recovered/Not Resolved]
  - Dyspepsia [Unknown]
  - Nausea [Unknown]
  - Oedema peripheral [Unknown]
  - Joint swelling [Unknown]
